FAERS Safety Report 13328815 (Version 2)
Quarter: 2017Q1

REPORT INFORMATION
  Report Type: Spontaneous
  Country: PL (occurrence: PL)
  Receive Date: 20170313
  Receipt Date: 20170314
  Transmission Date: 20170428
  Serious: Yes (Hospitalization)
  Sender: FDA-Public Use
  Company Number: PHHY2017PL031647

PATIENT
  Age: 62 Year
  Sex: Female

DRUGS (1)
  1. AMOXICILLIN-CLAVULANIC ACID [Suspect]
     Active Substance: AMOXICILLIN\CLAVULANIC ACID
     Indication: UPPER RESPIRATORY TRACT INFECTION
     Route: 065

REACTIONS (9)
  - Blood creatinine increased [Recovering/Resolving]
  - Anaemia [Recovering/Resolving]
  - Hyperuricaemia [Recovering/Resolving]
  - Leukopenia [Recovering/Resolving]
  - C-reactive protein increased [Recovering/Resolving]
  - Blood urea increased [Recovering/Resolving]
  - Neutropenia [Recovering/Resolving]
  - Tubulointerstitial nephritis [Recovering/Resolving]
  - Haematuria [Recovering/Resolving]
